FAERS Safety Report 20177135 (Version 1)
Quarter: 2021Q4

REPORT INFORMATION
  Report Type: Spontaneous
  Country: BR (occurrence: BR)
  Receive Date: 20211213
  Receipt Date: 20211213
  Transmission Date: 20220303
  Serious: Yes (Other)
  Sender: FDA-Public Use
  Company Number: BR-PFIZER INC-202101689809

PATIENT
  Age: 74 Year
  Sex: Female

DRUGS (1)
  1. LONITEN [Suspect]
     Active Substance: MINOXIDIL
     Dosage: UNK

REACTIONS (4)
  - Swelling [Unknown]
  - Weight decreased [Unknown]
  - Periorbital swelling [Unknown]
  - Labyrinthitis [Unknown]
